FAERS Safety Report 9686380 (Version 1)
Quarter: 2013Q4

REPORT INFORMATION
  Report Type: Spontaneous
  Country: GB (occurrence: None)
  Receive Date: 20131108
  Receipt Date: 20131108
  Transmission Date: 20140711
  Serious: Yes (Other)
  Sender: FDA-Public Use
  Company Number: AUR-APL-2013-09172

PATIENT
  Age: 77 Year
  Sex: Male
  Weight: 77.5 kg

DRUGS (4)
  1. DONEPEZIL [Suspect]
     Indication: DEMENTIA ALZHEIMER^S TYPE
     Route: 048
     Dates: start: 20130312, end: 20130321
  2. ASPIRIN (ACETYLSALICYLIC ACID) [Concomitant]
  3. SIMVASTATIN (SIMVASTATIN) [Concomitant]
  4. TRIMETHOPRIM (TRIMETHOPRIM) [Concomitant]

REACTIONS (1)
  - Grand mal convulsion [None]
